FAERS Safety Report 18814512 (Version 7)
Quarter: 2021Q2

REPORT INFORMATION
  Report Type: Spontaneous
  Country: ES (occurrence: ES)
  Receive Date: 20210201
  Receipt Date: 20210531
  Transmission Date: 20210717
  Serious: Yes (Hospitalization, Other)
  Sender: FDA-Public Use
  Company Number: ES-ASTELLAS-2021US003158

PATIENT
  Age: 62 Year
  Sex: Male

DRUGS (9)
  1. GILTERITINIB [Suspect]
     Active Substance: GILTERITINIB
     Route: 048
     Dates: start: 20201221, end: 20201223
  2. SIROLIMUS. [Concomitant]
     Active Substance: SIROLIMUS
     Indication: ACUTE MYELOID LEUKAEMIA
     Dosage: UNK UNK, UNKNOWN FREQ.
     Route: 065
  3. AMLODIPINE [Concomitant]
     Active Substance: AMLODIPINE BESYLATE
     Indication: PRODUCT USED FOR UNKNOWN INDICATION
     Route: 048
  4. GILTERITINIB [Suspect]
     Active Substance: GILTERITINIB
     Route: 048
     Dates: start: 20210216
  5. ACETAMINOPHEN. [Concomitant]
     Active Substance: ACETAMINOPHEN
     Indication: PRODUCT USED FOR UNKNOWN INDICATION
     Route: 048
  6. LORAZEPAM. [Concomitant]
     Active Substance: LORAZEPAM
     Indication: PRODUCT USED FOR UNKNOWN INDICATION
     Route: 048
  7. GILTERITINIB [Suspect]
     Active Substance: GILTERITINIB
     Indication: ACUTE MYELOID LEUKAEMIA
     Route: 048
     Dates: end: 20201220
  8. GILTERITINIB [Suspect]
     Active Substance: GILTERITINIB
     Route: 048
     Dates: start: 20201229
  9. ONDANSETRON [Concomitant]
     Active Substance: ONDANSETRON
     Indication: PRODUCT USED FOR UNKNOWN INDICATION
     Route: 048

REACTIONS (12)
  - Electrocardiogram QT prolonged [Recovered/Resolved]
  - Oral disorder [Recovered/Resolved]
  - Face oedema [Recovered/Resolved]
  - Thrombocytopenia [Recovered/Resolved]
  - Urticaria [Unknown]
  - Device related sepsis [Recovered/Resolved]
  - Spinal cord disorder [Recovered/Resolved]
  - Tooth infection [Recovered/Resolved]
  - Nasal herpes [Recovered/Resolved]
  - Bacteraemia [Recovered/Resolved]
  - Oral herpes [Unknown]
  - Enterococcal sepsis [Recovered/Resolved]

NARRATIVE: CASE EVENT DATE: 20201119
